FAERS Safety Report 4887990-8 (Version None)
Quarter: 2006Q1

REPORT INFORMATION
  Report Type: 
  Country: None (occurrence: None)
  Receive Date: 20060123
  Receipt Date: 20050718
  Transmission Date: 20060701
  Serious: Yes (Hospitalization)
  Sender: FDA-Public Use
  Company Number: US-MERCK-0507USA02826

PATIENT
  Age: 60 Year
  Sex: Female
  Weight: 80 kg

DRUGS (2)
  1. VIOXX [Suspect]
     Indication: OSTEOARTHRITIS
     Route: 048
     Dates: start: 20010501
  2. [THERAPY UNSPECIFIED] [Suspect]
     Route: 065

REACTIONS (7)
  - ANXIETY [None]
  - ASTHENIA [None]
  - CARDIAC MURMUR [None]
  - CEREBROVASCULAR DISORDER [None]
  - DIZZINESS [None]
  - OEDEMA PERIPHERAL [None]
  - TRANSIENT ISCHAEMIC ATTACK [None]
